FAERS Safety Report 4622461-5 (Version None)
Quarter: 2005Q1

REPORT INFORMATION
  Report Type: 
  Country: None (occurrence: None)
  Receive Date: 20050330
  Receipt Date: 20050318
  Transmission Date: 20050727
  Serious: Yes (Life-Threatening)
  Sender: FDA-Public Use
  Company Number: 200511024FR

PATIENT
  Age: 80 Year
  Sex: Male

DRUGS (3)
  1. LASILIX [Suspect]
     Indication: ATRIAL FIBRILLATION
     Route: 048
     Dates: end: 20030723
  2. CORDARONE [Suspect]
     Indication: ATRIAL FLUTTER
     Route: 048
     Dates: end: 20030723
  3. DIGOXIN [Concomitant]
     Route: 048
     Dates: end: 20030723

REACTIONS (6)
  - DRUG LEVEL INCREASED [None]
  - ELECTROCARDIOGRAM QT PROLONGED [None]
  - LOSS OF CONSCIOUSNESS [None]
  - PNEUMONIA ASPIRATION [None]
  - RESPIRATORY ARREST [None]
  - TORSADE DE POINTES [None]
